FAERS Safety Report 5648876-4 (Version None)
Quarter: 2008Q1

REPORT INFORMATION
  Report Type: 
  Country: None (occurrence: None)
  Receive Date: 20080303
  Receipt Date: 20080303
  Transmission Date: 20080703
  Serious: Yes (Hospitalization)
  Sender: FDA-Public Use
  Company Number: None

PATIENT
  Age: 84 Year
  Sex: Male

DRUGS (3)
  1. PRAZOSIN HCL [Suspect]
     Indication: BENIGN PROSTATIC HYPERPLASIA
     Dosage: 2MG BID PO
     Route: 048
     Dates: start: 20001107, end: 20071113
  2. DIAZEPAM [Suspect]
     Indication: ANXIETY
     Dosage: 2.5MG BID PO
     Route: 048
     Dates: start: 20001107
  3. DIAZEPAM [Suspect]
     Indication: INSOMNIA
     Dosage: 2.5MG BID PO
     Route: 048
     Dates: start: 20001107

REACTIONS (4)
  - ARRHYTHMIA [None]
  - ATRIAL FLUTTER [None]
  - DIZZINESS [None]
  - SYNCOPE [None]
